FAERS Safety Report 10801668 (Version 2)
Quarter: 2020Q4

REPORT INFORMATION
  Report Type: Spontaneous
  Country: FR (occurrence: FR)
  Receive Date: 20150217
  Receipt Date: 20201026
  Transmission Date: 20210113
  Serious: No
  Sender: FDA-Public Use
  Company Number: FR-RANBAXY-2015R1-92984

PATIENT
  Age: 23 Year
  Sex: Male

DRUGS (1)
  1. ISOTRETINOIN. [Suspect]
     Active Substance: ISOTRETINOIN
     Indication: ACNE
     Dosage: 20 MG, DAILY
     Route: 065
     Dates: start: 201004

REACTIONS (1)
  - Condition aggravated [Recovered/Resolved]
